FAERS Safety Report 14325743 (Version 1)
Quarter: 2017Q4

REPORT INFORMATION
  Report Type: Spontaneous
  Country: BE (occurrence: BE)
  Receive Date: 20171226
  Receipt Date: 20171226
  Transmission Date: 20180321
  Serious: Yes (Hospitalization, Other)
  Sender: FDA-Public Use
  Company Number: BE-MYLANLABS-2017M1081876

PATIENT
  Age: 62 Year
  Sex: Male

DRUGS (7)
  1. ENTACAPONE. [Concomitant]
     Active Substance: ENTACAPONE
     Indication: PARKINSON^S DISEASE
     Route: 065
  2. PRAMIPEXOL APOTEX [Suspect]
     Active Substance: PRAMIPEXOLE DIHYDROCHLORIDE
     Dosage: 0.35 MG, TID
     Route: 065
  3. RASAGILINE MESILATE [Suspect]
     Active Substance: RASAGILINE MESYLATE
     Dosage: UNK
     Route: 065
  4. RASAGILINE MESILATE [Suspect]
     Active Substance: RASAGILINE MESYLATE
     Indication: PARKINSON^S DISEASE
     Dosage: 1 MG, DAILY
     Route: 065
  5. PRAMIPEXOL APOTEX [Suspect]
     Active Substance: PRAMIPEXOLE DIHYDROCHLORIDE
     Indication: PARKINSON^S DISEASE
     Dosage: 0.7 MG, TID
     Route: 065
  6. LEVODOPA [Concomitant]
     Active Substance: LEVODOPA
     Indication: PARKINSON^S DISEASE
     Dosage: 600 MG, DAILY
     Route: 065
  7. LEVODOPA [Concomitant]
     Active Substance: LEVODOPA
     Dosage: 100 MG, SIX TIMES DAILY
     Route: 065

REACTIONS (1)
  - Cardiac failure [Recovered/Resolved]
